FAERS Safety Report 5279155-5 (Version None)
Quarter: 2007Q1

REPORT INFORMATION
  Report Type: 
  Country: None (occurrence: None)
  Receive Date: 20070328
  Receipt Date: 20061219
  Transmission Date: 20070707
  Serious: No
  Sender: FDA-Public Use
  Company Number: US-BRISTOL-MYERS SQUIBB COMPANY-13617097

PATIENT
  Age: 53 Year
  Sex: Male

DRUGS (4)
  1. SPRYCEL [Suspect]
     Dates: start: 20061107
  2. PROTONIX [Concomitant]
  3. PEPCID [Concomitant]
  4. BENTYL [Concomitant]

REACTIONS (1)
  - CHEST DISCOMFORT [None]
